FAERS Safety Report 5219102-5 (Version None)
Quarter: 2007Q1

REPORT INFORMATION
  Report Type: 
  Country: None (occurrence: None)
  Receive Date: 20070124
  Receipt Date: 20070124
  Transmission Date: 20070707
  Serious: No
  Sender: FDA-Public Use
  Company Number: None

PATIENT
  Sex: Female
  Weight: 105.2345 kg

DRUGS (1)
  1. SERATALINE [Suspect]
     Dosage: 100 MG DAILY

REACTIONS (5)
  - AFFECTIVE DISORDER [None]
  - ANGER [None]
  - DEPRESSION [None]
  - IRRITABILITY [None]
  - PHARMACEUTICAL PRODUCT COMPLAINT [None]
